FAERS Safety Report 17740105 (Version 1)
Quarter: 2020Q2

REPORT INFORMATION
  Report Type: Spontaneous
  Country: US (occurrence: US)
  Receive Date: 20200504
  Receipt Date: 20200504
  Transmission Date: 20200714
  Serious: No
  Sender: FDA-Public Use
  Company Number: None

PATIENT
  Sex: Female

DRUGS (9)
  1. SPIRONOLACTONE. [Concomitant]
     Active Substance: SPIRONOLACTONE
  2. DYMISTA [Concomitant]
     Active Substance: AZELASTINE HYDROCHLORIDE\FLUTICASONE PROPIONATE
  3. POTASSIUM [Concomitant]
     Active Substance: POTASSIUM
  4. METOLAZONE. [Concomitant]
     Active Substance: METOLAZONE
  5. PREDNISONE 10 MG [Concomitant]
     Active Substance: PREDNISONE
  6. OZEMPIC [Concomitant]
     Active Substance: SEMAGLUTIDE
  7. SPIRIVA HANDIHALER 180CG [Concomitant]
  8. FUROSEMIDE. [Concomitant]
     Active Substance: FUROSEMIDE
  9. TALTZ [Suspect]
     Active Substance: IXEKIZUMAB
     Indication: SPONDYLOARTHROPATHY
     Route: 058
     Dates: start: 20200401

REACTIONS (1)
  - Headache [None]
